FAERS Safety Report 13853725 (Version 1)
Quarter: 2017Q3

REPORT INFORMATION
  Report Type: Spontaneous
  Country: US (occurrence: US)
  Receive Date: 20170810
  Receipt Date: 20170810
  Transmission Date: 20171127
  Serious: No
  Sender: FDA-Public Use
  Company Number: US-BAYER-2017-152190

PATIENT
  Age: 11 Year
  Sex: Female
  Weight: 36 kg

DRUGS (1)
  1. MIDOL EXTENDED RELIEF [Suspect]
     Active Substance: NAPROXEN SODIUM
     Dosage: UNK
     Route: 065
     Dates: start: 20170807

REACTIONS (2)
  - Drug administered to patient of inappropriate age [Unknown]
  - Insomnia [Unknown]

NARRATIVE: CASE EVENT DATE: 20170807
